FAERS Safety Report 5424867-3 (Version None)
Quarter: 2007Q3

REPORT INFORMATION
  Report Type: 
  Country: None (occurrence: None)
  Receive Date: 20070822
  Receipt Date: 20070810
  Transmission Date: 20080115
  Serious: Yes (Death)
  Sender: FDA-Public Use
  Company Number: MPS1-10732

PATIENT
  Sex: Male

DRUGS (1)
  1. ALDURAZYME [Suspect]
     Indication: MUCOPOLYSACCHARIDOSIS I
     Dosage: 40.6 MG QWK IV
     Route: 042
     Dates: start: 20030829, end: 20070701

REACTIONS (1)
  - DEATH [None]
